FAERS Safety Report 7305915-2 (Version None)
Quarter: 2011Q1

REPORT INFORMATION
  Report Type: 
  Country: None (occurrence: None)
  Receive Date: 20110210
  Receipt Date: 20110131
  Transmission Date: 20110831
  Serious: Yes (Hospitalization)
  Sender: FDA-Public Use
  Company Number: KV201100020

PATIENT
  Age: 57 Year
  Sex: Female

DRUGS (7)
  1. PREDNISOLONE [Concomitant]
  2. BERAPROST (BERAPROST) [Concomitant]
  3. DICLOFENAC (DICLOFENAC) [Concomitant]
  4. ALPROSTADIL [Concomitant]
  5. NIFEDIPINE [Concomitant]
  6. CEFAZOLIN [Concomitant]
  7. MORPHINE SULFATE [Suspect]
     Indication: PAIN
     Dosage: 20, 25  MG, QD, ORAL
     Route: 048

REACTIONS (2)
  - AMPUTATION [None]
  - CHOLECYSTITIS ACUTE [None]
